FAERS Safety Report 8544650-X (Version None)
Quarter: 2012Q3

REPORT INFORMATION
  Report Type: 
  Country: None (occurrence: None)
  Receive Date: 20120717
  Receipt Date: 20120709
  Transmission Date: 20120928
  Serious: Yes (Disabling)
  Sender: FDA-Public Use
  Company Number: USA/USA/12/0024996

PATIENT

DRUGS (2)
  1. ZOCOR [Suspect]
     Indication: BLOOD CHOLESTEROL
     Dates: start: 20010801, end: 20120101
  2. SIMVASTATIN [Suspect]
     Indication: BLOOD CHOLESTEROL
     Dates: start: 20010801, end: 20120101

REACTIONS (5)
  - ANHEDONIA [None]
  - PAIN [None]
  - RENAL DISORDER [None]
  - MUSCLE DISORDER [None]
  - ANXIETY [None]
